FAERS Safety Report 5568471-5 (Version None)
Quarter: 2007Q4

REPORT INFORMATION
  Report Type: 
  Country: None (occurrence: None)
  Receive Date: 20071220
  Receipt Date: 20071212
  Transmission Date: 20080405
  Serious: Yes (Other)
  Sender: FDA-Public Use
  Company Number: US-ABBOTT-07P-163-0426866-01

PATIENT
  Sex: Male
  Weight: 78.1 kg

DRUGS (13)
  1. HUMIRA [Suspect]
     Indication: RHEUMATOID ARTHRITIS
     Route: 058
     Dates: start: 20010705, end: 20071121
  2. ACETYLSALICYLIC ACID SRT [Concomitant]
     Indication: CORONARY ARTERY DISEASE
     Route: 048
     Dates: start: 20041205
  3. ATORVASTATIN CALCIUM [Concomitant]
     Indication: HYPERCHOLESTEROLAEMIA
     Route: 048
     Dates: start: 20040611
  4. WARFARIN SODIUM [Concomitant]
     Indication: CORONARY ARTERY DISEASE
     Route: 048
     Dates: start: 20041206
  5. WARFARIN SODIUM [Concomitant]
     Route: 048
     Dates: start: 20041207
  6. OLMESARTAN MEDOXOMIL [Concomitant]
     Indication: CORONARY ARTERY DISEASE
     Route: 048
     Dates: start: 20060228, end: 20060727
  7. OLMESARTAN MEDOXOMIL [Concomitant]
     Route: 048
     Dates: start: 20060728
  8. CITALOPRAM HYDROBROMIDE [Concomitant]
     Indication: DEPRESSION
     Route: 048
     Dates: start: 20070915, end: 20070929
  9. CITALOPRAM HYDROBROMIDE [Concomitant]
     Route: 048
     Dates: start: 20070930
  10. MAGNESIUM HYDROXIDE TAB [Concomitant]
     Indication: CONSTIPATION
     Route: 048
     Dates: start: 20070910
  11. DOCUSATE SODIUM [Concomitant]
     Indication: CONSTIPATION
     Route: 048
     Dates: start: 20070910
  12. FOLIC ACID [Concomitant]
     Indication: RHEUMATOID ARTHRITIS
     Route: 048
     Dates: start: 19971024
  13. METHOTREXATE [Concomitant]
     Indication: RHEUMATOID ARTHRITIS
     Route: 048
     Dates: start: 20031121, end: 20070901

REACTIONS (1)
  - SQUAMOUS CELL CARCINOMA [None]
